FAERS Safety Report 16908158 (Version 2)
Quarter: 2019Q4

REPORT INFORMATION
  Report Type: Report from Study
  Country: IT (occurrence: IT)
  Receive Date: 20191011
  Receipt Date: 20191016
  Transmission Date: 20200122
  Serious: Yes (Other)
  Sender: FDA-Public Use
  Company Number: IT-PFIZER INC-2019437815

PATIENT
  Age: 50 Year
  Sex: Female

DRUGS (3)
  1. OXALIPLATIN. [Suspect]
     Active Substance: OXALIPLATIN
     Indication: GASTROINTESTINAL NEOPLASM
     Dosage: UNK, CYCLIC (8 CYCLES OF ADJUVANT THERAPY)
  2. FOLINIC ACID [Concomitant]
     Active Substance: LEUCOVORIN
     Indication: GASTROINTESTINAL NEOPLASM
     Dosage: UNK, CYCLIC (8 CYCLES OF ADJUVANT THERAPY)
  3. FLUOROURACIL. [Concomitant]
     Active Substance: FLUOROURACIL
     Indication: GASTROINTESTINAL NEOPLASM
     Dosage: UNK, CYCLIC (8 CYCLES OF ADJUVANT THERAPY)

REACTIONS (6)
  - Non-cirrhotic portal hypertension [Recovering/Resolving]
  - Portal shunt [Recovering/Resolving]
  - Periportal sinus dilatation [Recovering/Resolving]
  - Splenomegaly [Not Recovered/Not Resolved]
  - Portal vein dilatation [Recovering/Resolving]
  - Venous injury [Recovering/Resolving]
